FAERS Safety Report 15136413 (Version 1)
Quarter: 2018Q3

REPORT INFORMATION
  Report Type: Spontaneous
  Country: IT (occurrence: IT)
  Receive Date: 20180712
  Receipt Date: 20180712
  Transmission Date: 20181010
  Serious: Yes (Hospitalization)
  Sender: FDA-Public Use
  Company Number: PHHY2018IT040393

PATIENT
  Age: 77 Year
  Sex: Female

DRUGS (4)
  1. AMOXICILLIN SANDOZ [Suspect]
     Active Substance: AMOXICILLIN
     Indication: ANTIBIOTIC PROPHYLAXIS
     Dosage: 1 G, TOTAL
     Route: 048
     Dates: start: 20180322, end: 20180322
  2. ACEDIUR [Concomitant]
     Active Substance: CAPTOPRIL\HYDROCHLOROTHIAZIDE
     Indication: PRODUCT USED FOR UNKNOWN INDICATION
     Dosage: UNK
     Route: 065
  3. FOLINA [Concomitant]
     Active Substance: FOLIC ACID
     Indication: PRODUCT USED FOR UNKNOWN INDICATION
     Dosage: 5 MG, UNK
     Route: 065
  4. CARDIOASPIRIN [Concomitant]
     Active Substance: ASPIRIN
     Indication: PRODUCT USED FOR UNKNOWN INDICATION
     Dosage: 100 MG, UNK
     Route: 065

REACTIONS (6)
  - Hypotension [Recovering/Resolving]
  - Loss of consciousness [Recovering/Resolving]
  - Erythema [Recovering/Resolving]
  - Drug hypersensitivity [Recovering/Resolving]
  - Syncope [Recovering/Resolving]
  - Pruritus [Recovering/Resolving]

NARRATIVE: CASE EVENT DATE: 20180322
